FAERS Safety Report 20308526 (Version 2)
Quarter: 2022Q1

REPORT INFORMATION
  Report Type: Spontaneous
  Country: BE (occurrence: BE)
  Receive Date: 20220107
  Receipt Date: 20220207
  Transmission Date: 20220424
  Serious: Yes (Death, Life-Threatening, Hospitalization, Other)
  Sender: FDA-Public Use
  Company Number: BE-009507513-2201BEL000463

PATIENT
  Age: 78 Year
  Sex: Male
  Weight: 96 kg

DRUGS (1)
  1. PEMBROLIZUMAB [Suspect]
     Active Substance: PEMBROLIZUMAB
     Indication: Oesophageal cancer metastatic
     Dosage: 200 MILLIGRAM, Q3W
     Dates: start: 20211026, end: 20211026

REACTIONS (2)
  - Death [Fatal]
  - Stevens-Johnson syndrome [Recovered/Resolved]

NARRATIVE: CASE EVENT DATE: 20211110
